FAERS Safety Report 25959345 (Version 2)
Quarter: 2025Q4

REPORT INFORMATION
  Report Type: Spontaneous
  Country: US (occurrence: US)
  Receive Date: 20251025
  Receipt Date: 20251208
  Transmission Date: 20260118
  Serious: No
  Sender: SANDOZ
  Company Number: US-SANDOZ-SDZ2025US078204

PATIENT
  Age: 47 Year
  Sex: Female

DRUGS (1)
  1. ESTRADIOL [Suspect]
     Active Substance: ESTRADIOL
     Indication: Product used for unknown indication
     Dosage: 0.075MG/24H 8TTS
     Route: 062
     Dates: start: 202503

REACTIONS (3)
  - Circumstance or information capable of leading to medication error [Unknown]
  - Device adhesion issue [Unknown]
  - Device defective [Unknown]

NARRATIVE: CASE EVENT DATE: 20251001
